FAERS Safety Report 8758851 (Version 1)
Quarter: 2012Q4

REPORT INFORMATION
  Report Type: 
  Country: AU (occurrence: AU)
  Receive Date: 20120829
  Receipt Date: 20120829
  Transmission Date: 20130627
  Serious: Yes (Other)
  Sender: FDA-Public Use
  Company Number: AU-NAPPMUNDI-USA-2012-0091982

PATIENT
  Sex: Male

DRUGS (2)
  1. OXYCONTIN TABLETS [Suspect]
     Indication: DRUG ABUSE
  2. ALCOHOL [Suspect]
     Indication: ALCOHOL ABUSE

REACTIONS (2)
  - Paranoia [Unknown]
  - Substance abuse [Unknown]
